FAERS Safety Report 13361246 (Version 1)
Quarter: 2017Q1

REPORT INFORMATION
  Report Type: Spontaneous
  Country: US (occurrence: US)
  Receive Date: 20170322
  Receipt Date: 20170322
  Transmission Date: 20170429
  Serious: No
  Sender: FDA-Public Use
  Company Number: US-AMGEN-USASP2017040905

PATIENT
  Age: 6 Year
  Sex: Female
  Weight: 24.49 kg

DRUGS (2)
  1. ENBREL [Suspect]
     Active Substance: ETANERCEPT
     Indication: JUVENILE IDIOPATHIC ARTHRITIS
     Dosage: 25 MG, UNK
     Route: 065
  2. IBUPROFEN. [Concomitant]
     Active Substance: IBUPROFEN
     Dosage: UNK

REACTIONS (4)
  - Pruritus [Unknown]
  - Migraine with aura [Not Recovered/Not Resolved]
  - Injection site vesicles [Recovering/Resolving]
  - Antinuclear antibody positive [Unknown]
